FAERS Safety Report 14207994 (Version 5)
Quarter: 2018Q4

REPORT INFORMATION
  Report Type: Report from Study
  Country: IT (occurrence: IT)
  Receive Date: 20171121
  Receipt Date: 20181127
  Transmission Date: 20190204
  Serious: Yes (Other)
  Sender: FDA-Public Use
  Company Number: IT-INCYTE CORPORATION-2017IN009839

PATIENT

DRUGS (2)
  1. JAKAVI [Suspect]
     Active Substance: RUXOLITINIB
     Indication: MYELOFIBROSIS
     Dosage: 20 OT, QD
     Route: 065
     Dates: start: 20170610
  2. COUMADIN [Concomitant]
     Active Substance: WARFARIN SODIUM
     Indication: THROMBOSIS
     Dosage: UNK
     Route: 065
     Dates: start: 2016, end: 20171013

REACTIONS (4)
  - Neuralgia [Unknown]
  - Herpes zoster [Unknown]
  - Pain [Unknown]
  - Mononeuropathy [Unknown]

NARRATIVE: CASE EVENT DATE: 20171012
